FAERS Safety Report 13100697 (Version 2)
Quarter: 2017Q1

REPORT INFORMATION
  Report Type: Report from Study
  Country: NL (occurrence: NL)
  Receive Date: 20170110
  Receipt Date: 20170316
  Transmission Date: 20170428
  Serious: Yes (Hospitalization, Other)
  Sender: FDA-Public Use
  Company Number: NL-TEVA-728376ROM

PATIENT
  Age: 69 Year
  Sex: Female

DRUGS (6)
  1. DOXORUBICINE [Suspect]
     Active Substance: DOXORUBICIN
     Indication: CHEMOTHERAPY
     Route: 042
     Dates: start: 20160905, end: 201610
  2. PANTOPRAZOL [Concomitant]
     Active Substance: PANTOPRAZOLE SODIUM
     Indication: GASTROINTESTINAL PAIN
     Dosage: 40 MILLIGRAM DAILY;
     Route: 048
     Dates: start: 20161014
  3. VIDISIC [Concomitant]
     Indication: DRY EYE
     Dosage: 1 DOSAGE FORM PER DAY; 1 DOSAGE FORM = 2 MG/G
     Route: 050
     Dates: start: 201610
  4. CYCLOFOSFAMIDE [Suspect]
     Active Substance: CYCLOPHOSPHAMIDE
     Indication: CHEMOTHERAPY
     Route: 042
     Dates: start: 20160905, end: 20161017
  5. PARACETAMOL [Concomitant]
     Active Substance: ACETAMINOPHEN
     Indication: GASTROINTESTINAL PAIN
     Dosage: DAILY DOSE 500-3000 MG
     Route: 048
     Dates: start: 201610
  6. LONQUEX 6MG OPLOSSING VOOR INJECTIE [Suspect]
     Active Substance: LIPEGFILGRASTIM
     Indication: BREAST CANCER
     Route: 058
     Dates: start: 20160906, end: 20161018

REACTIONS (1)
  - Pneumonitis [Recovered/Resolved]

NARRATIVE: CASE EVENT DATE: 20161029
